FAERS Safety Report 7784535-X (Version None)
Quarter: 2011Q3

REPORT INFORMATION
  Report Type: 
  Country: None (occurrence: None)
  Receive Date: 20110928
  Receipt Date: 20110921
  Transmission Date: 20111222
  Serious: Yes (Hospitalization)
  Sender: FDA-Public Use
  Company Number: JP-CEPHALON-2011003737

PATIENT
  Sex: Male
  Weight: 61 kg

DRUGS (10)
  1. RITUXIMAB [Suspect]
     Dates: start: 20110401, end: 20110614
  2. GRANISETRON HYDROCHLORIDE [Concomitant]
     Dates: start: 20110315, end: 20110621
  3. FAMOTIDINE [Concomitant]
     Indication: PROPHYLAXIS
     Dates: start: 20110315, end: 20110701
  4. DEXAMETHASONE SODIUM PHOSPHATE [Concomitant]
     Indication: CHEMOTHERAPY
     Dates: start: 20110315, end: 20110621
  5. TEPRENONE [Concomitant]
     Route: 048
     Dates: start: 20110315, end: 20110701
  6. ITRACONAZOLE [Concomitant]
     Route: 048
     Dates: start: 20110315, end: 20110701
  7. TREANDA [Suspect]
     Indication: B-CELL LYMPHOMA
     Route: 042
     Dates: start: 20110315, end: 20110316
  8. CLOSTRIDIUM BUTYRICUM [Concomitant]
     Indication: PROPHYLAXIS
     Route: 048
     Dates: start: 20110315, end: 20110701
  9. SULFAMETHOXAZOLE AND TRIMETHOPRIM [Concomitant]
     Indication: PROPHYLAXIS
     Route: 048
     Dates: start: 20110315, end: 20110701
  10. TREANDA [Suspect]
     Route: 042
     Dates: start: 20110412, end: 20110622

REACTIONS (1)
  - HERPES ZOSTER DISSEMINATED [None]
